FAERS Safety Report 11475702 (Version 2)
Quarter: 2015Q3

REPORT INFORMATION
  Report Type: Report from Study
  Country: US (occurrence: US)
  Receive Date: 20150909
  Receipt Date: 20150918
  Transmission Date: 20151125
  Serious: No
  Sender: FDA-Public Use
  Company Number: US-AMGEN-USASP2015092215

PATIENT
  Age: 55 Year
  Sex: Female

DRUGS (2)
  1. ENBREL [Suspect]
     Active Substance: ETANERCEPT
     Indication: PSORIATIC ARTHROPATHY
     Dosage: 50 MG, UNK
     Route: 065
  2. ENBREL [Suspect]
     Active Substance: ETANERCEPT
     Dosage: 25 MG, UNK POWDER FOR INJECTION
     Route: 065

REACTIONS (5)
  - Injection site bruising [Unknown]
  - Incorrect product storage [Unknown]
  - Cyanosis [Unknown]
  - Contusion [Unknown]
  - Injection site erythema [Unknown]

NARRATIVE: CASE EVENT DATE: 201509
